FAERS Safety Report 5893115-2 (Version None)
Quarter: 2008Q3

REPORT INFORMATION
  Report Type: 
  Country: None (occurrence: None)
  Receive Date: 20080922
  Receipt Date: 20080922
  Transmission Date: 20090109
  Serious: Yes (Other)
  Sender: FDA-Public Use
  Company Number: None

PATIENT
  Sex: Female
  Weight: 88.4514 kg

DRUGS (1)
  1. KLONOPIN [Suspect]
     Indication: ANXIETY
     Dosage: HALF A PILL BEDTIME PO
     Route: 048
     Dates: start: 20080912, end: 20080920

REACTIONS (6)
  - CONDITION AGGRAVATED [None]
  - DEPRESSION [None]
  - EYE SWELLING [None]
  - LETHARGY [None]
  - SUICIDAL IDEATION [None]
  - SWELLING FACE [None]
